FAERS Safety Report 6908160-5 (Version None)
Quarter: 2010Q3

REPORT INFORMATION
  Report Type: 
  Country: None (occurrence: None)
  Receive Date: 20100716
  Receipt Date: 20090814
  Transmission Date: 20110219
  Serious: Yes (Hospitalization, Other)
  Sender: FDA-Public Use
  Company Number: 2009235500

PATIENT
  Sex: Female
  Weight: 52.2 kg

DRUGS (3)
  1. CELEBREX [Suspect]
     Indication: OSTEOARTHRITIS
     Dosage: , ORAL
     Route: 048
     Dates: end: 20050101
  2. ACCUPRIL [Concomitant]
  3. PROTONIX [Concomitant]

REACTIONS (7)
  - CHEST PAIN [None]
  - DEHYDRATION [None]
  - DIZZINESS [None]
  - DYSPNOEA [None]
  - LUNG DISORDER [None]
  - MYOCARDIAL INFARCTION [None]
  - PNEUMONIA [None]
